FAERS Safety Report 9135228 (Version 1)
Quarter: 2013Q1

REPORT INFORMATION
  Report Type: Spontaneous
  Country: US (occurrence: US)
  Receive Date: 20130304
  Receipt Date: 20130304
  Transmission Date: 20140127
  Serious: Yes (Death, Other)
  Sender: FDA-Public Use
  Company Number: US-ENDO PHARMACEUTICALS INC.-MSER20120063

PATIENT
  Age: 58 Year
  Sex: Female

DRUGS (3)
  1. MORPHINE SULFATE CONTROLLED RELEASE [Suspect]
     Indication: PAIN
     Route: 048
  2. PERCOCET [Suspect]
     Indication: PAIN
     Dosage: 30MG/975MG
     Route: 048
  3. AMBIEN [Suspect]
     Indication: PRODUCT USED FOR UNKNOWN INDICATION
     Dosage: 5 MG
     Route: 048

REACTIONS (3)
  - Death [Fatal]
  - Drug abuse [Unknown]
  - Syncope [Unknown]
